FAERS Safety Report 4437014-1 (Version None)
Quarter: 2004Q3

REPORT INFORMATION
  Report Type: 
  Country: None (occurrence: None)
  Receive Date: 20040830
  Receipt Date: 20010724
  Transmission Date: 20050211
  Serious: Yes (Disabling, Other)
  Sender: FDA-Public Use
  Company Number: US-MERCK-01072444

PATIENT
  Age: 57 Year
  Sex: Female
  Weight: 77 kg

DRUGS (3)
  1. HYDROCODIN [Suspect]
     Indication: BACK DISORDER
     Route: 065
  2. VIOXX [Suspect]
     Indication: BACK PAIN
     Route: 048
  3. VIOXX [Suspect]
     Indication: BACK DISORDER
     Route: 048

REACTIONS (24)
  - AMNESIA [None]
  - BASAL CELL CARCINOMA [None]
  - CEREBROVASCULAR ACCIDENT [None]
  - DEPRESSION [None]
  - DIARRHOEA [None]
  - DISTURBANCE IN ATTENTION [None]
  - EPIDERMAL NAEVUS [None]
  - FALL [None]
  - FATIGUE [None]
  - HEADACHE [None]
  - HYPERTENSION [None]
  - INSOMNIA [None]
  - INTERVERTEBRAL DISC PROTRUSION [None]
  - LOW DENSITY LIPOPROTEIN INCREASED [None]
  - MUSCULOSKELETAL STIFFNESS [None]
  - NECK PAIN [None]
  - PARAESTHESIA [None]
  - PIGMENTATION DISORDER [None]
  - ROAD TRAFFIC ACCIDENT [None]
  - SKIN LACERATION [None]
  - SKIN LESION [None]
  - THINKING ABNORMAL [None]
  - VOMITING [None]
  - WOUND COMPLICATION [None]
